FAERS Safety Report 9995660 (Version 1)
Quarter: 2014Q1

REPORT INFORMATION
  Report Type: Spontaneous
  Country: US (occurrence: None)
  Receive Date: 20140310
  Receipt Date: 20140310
  Transmission Date: 20141002
  Serious: No
  Sender: FDA-Public Use
  Company Number: None

PATIENT
  Age: 15 Year
  Sex: Male
  Weight: 67.4 kg

DRUGS (2)
  1. ADVATE [Suspect]
     Indication: HAEMOPHILIA
     Dosage: 2729 IU 3X/WEEKLY PROPHY INTRAVENOUS
  2. ADVATE [Suspect]
     Indication: PROPHYLAXIS
     Dosage: 2729 IU 3X/WEEKLY PROPHY INTRAVENOUS

REACTIONS (4)
  - Pruritus [None]
  - Urticaria [None]
  - Swollen tongue [None]
  - Condition aggravated [None]
